FAERS Safety Report 9910176 (Version 2)
Quarter: 2014Q1

REPORT INFORMATION
  Report Type: Spontaneous
  Country: AU (occurrence: AU)
  Receive Date: 20140219
  Receipt Date: 20140219
  Transmission Date: 20141002
  Serious: Yes (Other)
  Sender: FDA-Public Use
  Company Number: AU-PFIZER INC-2014041574

PATIENT
  Age: 60 Year
  Sex: Female

DRUGS (5)
  1. EFEXOR XR [Suspect]
     Dosage: UNK
  2. CELEXA [Suspect]
     Dosage: UNK
  3. SEROQUEL XR [Interacting]
     Indication: MAJOR DEPRESSION
     Dosage: 150 MG, AT NIGHT
     Route: 048
  4. ARSENIC TRIOXIDE [Interacting]
     Dosage: UNK
  5. WARFARIN [Suspect]
     Indication: PULMONARY EMBOLISM
     Dosage: UNK

REACTIONS (4)
  - Electrocardiogram QT prolonged [Unknown]
  - Neutropenia [Unknown]
  - Acute promyelocytic leukaemia [Recovering/Resolving]
  - Drug interaction [Unknown]
